FAERS Safety Report 9768884 (Version 1)
Quarter: 2013Q3

REPORT INFORMATION
  Report Type: Spontaneous
  Country: US (occurrence: None)
  Receive Date: 20130903
  Receipt Date: 20130903
  Transmission Date: 20140515
  Serious: Yes (Life-Threatening)
  Sender: FDA-Public Use
  Company Number: 140011

PATIENT
  Age: 30 Year
  Sex: Male

DRUGS (1)
  1. DAUNORUBICIN HCL INJ. 20MG/4ML - BEDFORD LABS, INC. [Suspect]
     Indication: ACUTE MYELOID LEUKAEMIA
     Dates: start: 20110325, end: 20110327

REACTIONS (6)
  - Pleural effusion [None]
  - Dyspnoea [None]
  - Pneumonia viral [None]
  - Febrile bone marrow aplasia [None]
  - Sepsis [None]
  - Respiratory failure [None]
